FAERS Safety Report 4824056-7 (Version None)
Quarter: 2005Q4

REPORT INFORMATION
  Report Type: 
  Country: None (occurrence: None)
  Receive Date: 20051108
  Receipt Date: 20051031
  Transmission Date: 20060501
  Serious: Yes (Hospitalization)
  Sender: FDA-Public Use
  Company Number: US_0409105770

PATIENT
  Age: 78 Year
  Sex: Female
  Weight: 50 kg

DRUGS (28)
  1. HUMATROPE [Suspect]
     Indication: GROWTH HORMONE DEFICIENCY
     Dosage: 0.33 U/L DAY
     Dates: start: 20011018, end: 20020822
  2. HUMALOG MIX 75/25 [Concomitant]
  3. L-THYROXINE [Concomitant]
  4. CORTEF [Concomitant]
  5. TYLENOL W/ CODEINE [Concomitant]
  6. MONOPRIL [Concomitant]
  7. VERAPAMIL [Concomitant]
  8. AMITRIPTYLINE HCL [Concomitant]
  9. PRILOSEC [Concomitant]
  10. ASPIRIN [Concomitant]
  11. ATROVENT [Concomitant]
  12. CALCIUM CITRATE [Concomitant]
  13. MULTI-VITAMIN [Concomitant]
  14. VITAMIN E [Concomitant]
  15. CAPTOPRIL (CAPTOPRIL BIOCHEMIE) [Concomitant]
  16. WARFARIN [Concomitant]
  17. MILK OF MAGNESIA TAB [Concomitant]
  18. COLACE (DOCUSATE SODIUM) [Concomitant]
  19. SENNA ALEXANDRINA LIQUID EXTRACT [Concomitant]
  20. BUSPIRONE HCL [Concomitant]
  21. AVANDIA [Concomitant]
  22. KLOR-CON [Concomitant]
  23. ZOLOFT [Concomitant]
  24. AMBIEN [Concomitant]
  25. HYDROCHLOROTHIAZIDE [Concomitant]
  26. SYNTHROID [Concomitant]
  27. PRAVACHOL [Concomitant]
  28. PREVACID [Concomitant]

REACTIONS (36)
  - ABDOMINAL DISCOMFORT [None]
  - ABDOMINAL PAIN [None]
  - ABDOMINAL PAIN LOWER [None]
  - ADRENAL INSUFFICIENCY [None]
  - ANXIETY [None]
  - ASTHENIA [None]
  - BLOOD GLUCOSE INCREASED [None]
  - BLOOD PRESSURE SYSTOLIC INCREASED [None]
  - BURNING SENSATION [None]
  - CHEST PAIN [None]
  - CHOLELITHIASIS [None]
  - COLON CANCER [None]
  - CONSTIPATION [None]
  - DEPRESSION [None]
  - DYSPEPSIA [None]
  - FALL [None]
  - FLANK PAIN [None]
  - GASTROINTESTINAL OEDEMA [None]
  - HYPOGLYCAEMIA [None]
  - INFREQUENT BOWEL MOVEMENTS [None]
  - INTERNATIONAL NORMALISED RATIO ABNORMAL [None]
  - LOSS OF CONSCIOUSNESS [None]
  - MESENTERIC VEIN THROMBOSIS [None]
  - NAUSEA [None]
  - OXYGEN SATURATION DECREASED [None]
  - PAIN [None]
  - PITUITARY TUMOUR BENIGN [None]
  - PLATELET COUNT INCREASED [None]
  - PYELOCALIECTASIS [None]
  - RENAL CYST [None]
  - RESPIRATORY RATE INCREASED [None]
  - SHOULDER PAIN [None]
  - SYNCOPE [None]
  - VENTRICULAR HYPERTROPHY [None]
  - VOMITING [None]
  - WHITE BLOOD CELLS URINE POSITIVE [None]
